FAERS Safety Report 6915368-1 (Version None)
Quarter: 2010Q3

REPORT INFORMATION
  Report Type: 
  Country: None (occurrence: None)
  Receive Date: 20100809
  Receipt Date: 20100212
  Transmission Date: 20110219
  Serious: No
  Sender: FDA-Public Use
  Company Number: US-ABBOTT-10P-163-0626786-00

PATIENT
  Sex: Female
  Weight: 65.83 kg

DRUGS (7)
  1. DEPAKOTE ER [Suspect]
     Indication: AFFECTIVE DISORDER
     Dates: start: 20100204, end: 20100205
  2. DEPAKOTE ER [Suspect]
     Dates: start: 20100205, end: 20100210
  3. DEPAKOTE ER [Suspect]
     Dates: start: 20100211
  4. CYMBALTA [Concomitant]
     Indication: MOOD SWINGS
  5. CYMBALTA [Concomitant]
     Indication: FIBROMYALGIA
  6. SEROQUEL [Concomitant]
     Indication: SLEEP DISORDER THERAPY
  7. DIAZEPAM [Concomitant]
     Indication: ANXIETY

REACTIONS (3)
  - EYE HAEMORRHAGE [None]
  - NAUSEA [None]
  - VOMITING [None]
